FAERS Safety Report 17350729 (Version 1)
Quarter: 2020Q1

REPORT INFORMATION
  Report Type: Spontaneous
  Country: JP (occurrence: JP)
  Receive Date: 20200130
  Receipt Date: 20200130
  Transmission Date: 20200409
  Serious: Yes (Other)
  Sender: FDA-Public Use
  Company Number: JP-TEVA-2020-JP-001327J

PATIENT
  Age: 92 Year
  Sex: Female
  Weight: 58 kg

DRUGS (6)
  1. CERCINE [Suspect]
     Active Substance: DIAZEPAM
     Indication: ANXIETY DISORDER
     Dosage: 2 MILLIGRAM DAILY;
     Route: 048
     Dates: end: 20191105
  2. AMLODIPINE OD TABLET 10 MG [Suspect]
     Active Substance: AMLODIPINE BESYLATE
     Indication: PRODUCT USED FOR UNKNOWN INDICATION
     Dosage: 5 MILLIGRAM DAILY;
     Route: 048
  3. LANSOPRAZOLE OD [Concomitant]
     Active Substance: LANSOPRAZOLE
     Route: 065
  4. MOHRUS TAPE [Concomitant]
     Active Substance: KETOPROFEN
     Route: 065
  5. L-CARBOCISTEINE [Concomitant]
     Active Substance: CARBOCYSTEINE
     Route: 065
  6. EDIROL [Concomitant]
     Active Substance: ELDECALCITOL
     Route: 065

REACTIONS (1)
  - Fall [Recovering/Resolving]

NARRATIVE: CASE EVENT DATE: 20191101
